FAERS Safety Report 18888504 (Version 1)
Quarter: 2021Q1

REPORT INFORMATION
  Report Type: Spontaneous
  Country: US (occurrence: US)
  Receive Date: 20210212
  Receipt Date: 20210212
  Transmission Date: 20210420
  Serious: Yes (Hospitalization, Other)
  Sender: FDA-Public Use
  Company Number: US-ELI_LILLY_AND_COMPANY-US202102002108

PATIENT
  Sex: Female

DRUGS (1)
  1. BASAGLAR [Suspect]
     Active Substance: INSULIN GLARGINE
     Indication: PRODUCT USED FOR UNKNOWN INDICATION
     Dosage: 35 INTERNATIONAL UNIT, BID
     Route: 058

REACTIONS (5)
  - Hypertension [Unknown]
  - Visual impairment [Not Recovered/Not Resolved]
  - Diplopia [Unknown]
  - Mydriasis [Not Recovered/Not Resolved]
  - Inappropriate schedule of product administration [Unknown]
